FAERS Safety Report 11786319 (Version 1)
Quarter: 2015Q4

REPORT INFORMATION
  Report Type: Spontaneous
  Country: HK (occurrence: HK)
  Receive Date: 20151130
  Receipt Date: 20151130
  Transmission Date: 20160305
  Serious: Yes (Hospitalization)
  Sender: FDA-Public Use
  Company Number: HK-JUBILANT CADISTA PHARMACEUTICALS-2015JUB00383

PATIENT
  Age: 67 Year
  Sex: Male

DRUGS (3)
  1. PREDNISONE. [Suspect]
     Active Substance: PREDNISONE
     Indication: PSORIASIS
  2. ^OTHER HERBAL MARKERS^ [Concomitant]
     Indication: PSORIASIS
  3. PREDNISONE. [Suspect]
     Active Substance: PREDNISONE
     Indication: PSORIASIS

REACTIONS (7)
  - Shock [Recovered/Resolved]
  - Acute kidney injury [Recovered/Resolved]
  - Abdominal discomfort [Recovered/Resolved]
  - Lung abscess [Recovered/Resolved]
  - Respiratory distress [Recovered/Resolved]
  - Pseudomonas infection [Recovered/Resolved]
  - Product contamination [Recovered/Resolved]

NARRATIVE: CASE EVENT DATE: 2012
